FAERS Safety Report 8594705-9 (Version None)
Quarter: 2012Q3

REPORT INFORMATION
  Report Type: 
  Country: None (occurrence: None)
  Receive Date: 20120815
  Receipt Date: 20120801
  Transmission Date: 20120928
  Serious: Yes (Other)
  Sender: FDA-Public Use
  Company Number: JP-AMGEN-JPNSP2012050228

PATIENT
  Sex: Female

DRUGS (3)
  1. RANMARK [Suspect]
     Indication: PRODUCT USED FOR UNKNOWN INDICATION
     Dosage: 120 MG, Q4WK
     Route: 058
     Dates: start: 20120501
  2. TS-1 [Concomitant]
     Dosage: UNKNOWN
     Route: 048
  3. FEMARA [Concomitant]
     Dosage: 2.5 MG, QD
     Route: 048
     Dates: start: 20100101

REACTIONS (1)
  - HUMERUS FRACTURE [None]
